FAERS Safety Report 7475298-6 (Version None)
Quarter: 2011Q1

REPORT INFORMATION
  Report Type: 
  Country: None (occurrence: None)
  Receive Date: 20110303
  Receipt Date: 20101122
  Transmission Date: 20110831
  Serious: No
  Sender: FDA-Public Use
  Company Number: 163-22393-10103023

PATIENT
  Age: 64 Year
  Sex: Male
  Weight: 42.1845 kg

DRUGS (1)
  1. ISTODAX [Suspect]
     Indication: MYCOSIS FUNGOIDES
     Dosage: DAY 1, 8, 15, IV
     Route: 042
     Dates: start: 20101001

REACTIONS (3)
  - RASH [None]
  - PYREXIA [None]
  - INFUSION SITE EXTRAVASATION [None]
